FAERS Safety Report 17258273 (Version 1)
Quarter: 2020Q1

REPORT INFORMATION
  Report Type: Report from Study
  Country: US (occurrence: US)
  Receive Date: 20200110
  Receipt Date: 20200110
  Transmission Date: 20200409
  Serious: Yes (Hospitalization)
  Sender: FDA-Public Use
  Company Number: US-PFIZER INC-2020004222

PATIENT
  Age: 16 Year
  Sex: Male
  Weight: 50.5 kg

DRUGS (28)
  1. METHOTREXATE SODIUM. [Suspect]
     Active Substance: METHOTREXATE SODIUM
     Dosage: 15 MG, SINGLE
     Route: 037
     Dates: start: 20170627, end: 20170627
  2. METHOTREXATE SODIUM. [Suspect]
     Active Substance: METHOTREXATE SODIUM
     Dosage: 12 MG, SINGLE
     Route: 037
     Dates: start: 20170829, end: 20170829
  3. VINCRISTINE SULFATE. [Suspect]
     Active Substance: VINCRISTINE SULFATE
     Dosage: 2 MG, SINGLE
     Route: 042
     Dates: start: 20170710, end: 20170710
  4. VINCRISTINE SULFATE. [Suspect]
     Active Substance: VINCRISTINE SULFATE
     Dosage: 2 MG, SINGLE
     Route: 042
     Dates: start: 20170814, end: 20170814
  5. VINCRISTINE SULFATE. [Suspect]
     Active Substance: VINCRISTINE SULFATE
     Dosage: 2 MG, SINGLE
     Route: 042
     Dates: start: 20170829, end: 20170829
  6. CYTARABINE. [Suspect]
     Active Substance: CYTARABINE
     Dosage: 130 MG, 1X/DAY, INTRAVENOUS, MG/M2
     Route: 058
     Dates: start: 20170626, end: 20170629
  7. LEUCOVORIN. [Suspect]
     Active Substance: LEUCOVORIN
     Indication: B PRECURSOR TYPE ACUTE LEUKAEMIA
     Dosage: 24 MG, Q6H
     Route: 042
     Dates: start: 20170831, end: 20170925
  8. PEGASPARGASE [Suspect]
     Active Substance: PEGASPARGASE
     Dosage: 4200 IU, SINGLE, IU/M2
     Route: 042
     Dates: start: 20170814, end: 20170814
  9. METHOTREXATE SODIUM. [Suspect]
     Active Substance: METHOTREXATE SODIUM
     Indication: B PRECURSOR TYPE ACUTE LEUKAEMIA
     Dosage: 8150 MG, SINGLE
     Route: 042
     Dates: start: 20170829, end: 20170829
  10. METHOTREXATE SODIUM. [Suspect]
     Active Substance: METHOTREXATE SODIUM
     Dosage: 6100 MG, SINGLE
     Route: 042
     Dates: start: 20170922, end: 20170922
  11. MERCAPTOPURINE. [Suspect]
     Active Substance: MERCAPTOPURINE
     Dosage: 275 WEEKLY (1 TABLET DAILY FOR 4 DAYS AND 12 TABLET FOR 3 DAYS A WEEK), CYCLIC
     Route: 048
     Dates: start: 20170829, end: 20170905
  12. CYTARABINE. [Suspect]
     Active Substance: CYTARABINE
     Dosage: 130 MG, 1X/DAY, INTRAVENOUS, MG/M2
     Route: 058
     Dates: start: 20170731, end: 20170803
  13. VINCRISTINE SULFATE. [Suspect]
     Active Substance: VINCRISTINE SULFATE
     Dosage: 2 MG, SINGLE
     Route: 042
     Dates: start: 20170922, end: 20170922
  14. CYCLOPHOSPHAMIDE. [Suspect]
     Active Substance: CYCLOPHOSPHAMIDE
     Dosage: 1700 MG, SINGLE
     Route: 042
     Dates: start: 20170624, end: 20170624
  15. METHOTREXATE SODIUM. [Suspect]
     Active Substance: METHOTREXATE SODIUM
     Dosage: 15 MG, SINGLE
     Route: 037
     Dates: start: 20170711, end: 20170711
  16. CYTARABINE. [Suspect]
     Active Substance: CYTARABINE
     Dosage: 130 MG, 1X/DAY, INTRAVENOUS, MG/M2
     Route: 058
     Dates: start: 20170724, end: 20170727
  17. INCB018424 [Suspect]
     Active Substance: RUXOLITINIB
     Dosage: 85 MG, 2X/DAY, TABLET
     Route: 048
     Dates: start: 20170724, end: 20170806
  18. MERCAPTOPURINE. [Suspect]
     Active Substance: MERCAPTOPURINE
     Dosage: 700 MG, WEEKLY, TABLET
     Route: 048
     Dates: start: 20170724, end: 20170806
  19. METHOTREXATE SODIUM. [Suspect]
     Active Substance: METHOTREXATE SODIUM
     Dosage: 15 MG, SINGLE
     Route: 037
     Dates: start: 20170705, end: 20170705
  20. VINCRISTINE SULFATE. [Suspect]
     Active Substance: VINCRISTINE SULFATE
     Dosage: 2 MG, SINGLE
     Route: 042
     Dates: start: 20170807, end: 20170807
  21. METHOTREXATE SODIUM. [Suspect]
     Active Substance: METHOTREXATE SODIUM
     Indication: B PRECURSOR TYPE ACUTE LEUKAEMIA
     Dosage: 15 MG, SINGLE
     Route: 037
     Dates: start: 20170620, end: 20170620
  22. MERCAPTOPURINE. [Suspect]
     Active Substance: MERCAPTOPURINE
     Indication: B PRECURSOR TYPE ACUTE LEUKAEMIA
     Dosage: 725 MG, WEEKLY, TABLET
     Route: 048
     Dates: start: 20170619, end: 20170702
  23. CYCLOPHOSPHAMIDE. [Suspect]
     Active Substance: CYCLOPHOSPHAMIDE
     Indication: B PRECURSOR TYPE ACUTE LEUKAEMIA
     Dosage: 1740 MG, SINGLE
     Route: 042
     Dates: start: 20170619, end: 20170619
  24. CYTARABINE. [Suspect]
     Active Substance: CYTARABINE
     Indication: B PRECURSOR TYPE ACUTE LEUKAEMIA
     Dosage: 130 MG, 1X/DAY, INTRAVENOUS, MG/M2
     Route: 058
     Dates: start: 20170619, end: 20170622
  25. VINCRISTINE SULFATE. [Suspect]
     Active Substance: VINCRISTINE SULFATE
     Indication: B PRECURSOR TYPE ACUTE LEUKAEMIA
     Dosage: 2 MG, SINGLE
     Route: 042
     Dates: start: 20170703, end: 20170703
  26. INCB018424 [Suspect]
     Active Substance: RUXOLITINIB
     Indication: B PRECURSOR TYPE ACUTE LEUKAEMIA
     Dosage: 85 MG, 2X/DAY, TABLET
     Route: 048
     Dates: start: 20170619, end: 20170704
  27. INCB018424 [Suspect]
     Active Substance: RUXOLITINIB
     Dosage: 80 MG, 2X/DAY, TABLET
     Route: 048
     Dates: start: 20170829, end: 20170906
  28. PEGASPARGASE [Suspect]
     Active Substance: PEGASPARGASE
     Indication: B PRECURSOR TYPE ACUTE LEUKAEMIA
     Dosage: 4350 IU, SINGLE, IU/M2
     Route: 042
     Dates: start: 20170703, end: 20170703

REACTIONS (2)
  - Dehydration [Recovered/Resolved]
  - Stomatitis [Recovered/Resolved]

NARRATIVE: CASE EVENT DATE: 20170928
